FAERS Safety Report 5333169-5 (Version None)
Quarter: 2007Q2

REPORT INFORMATION
  Report Type: 
  Country: None (occurrence: None)
  Receive Date: 20070524
  Receipt Date: 20070516
  Transmission Date: 20071010
  Serious: Yes (Hospitalization)
  Sender: FDA-Public Use
  Company Number: PHEH2007US07592

PATIENT
  Age: 81 Year
  Sex: Female

DRUGS (1)
  1. FORADIL [Suspect]

REACTIONS (7)
  - ANXIETY [None]
  - BLOOD PRESSURE SYSTOLIC INCREASED [None]
  - CONFUSIONAL STATE [None]
  - DIPLOPIA [None]
  - THYROID DISORDER [None]
  - THYROID FUNCTION TEST ABNORMAL [None]
  - VISUAL ACUITY REDUCED [None]
